FAERS Safety Report 15981222 (Version 6)
Quarter: 2020Q1

REPORT INFORMATION
  Report Type: Spontaneous
  Country: US (occurrence: US)
  Receive Date: 20190219
  Receipt Date: 20200312
  Transmission Date: 20200409
  Serious: Yes (Hospitalization, Other)
  Sender: FDA-Public Use
  Company Number: US-PFIZER INC-2016577453

PATIENT
  Age: 67 Year
  Sex: Female
  Weight: 53 kg

DRUGS (15)
  1. LYRICA [Suspect]
     Active Substance: PREGABALIN
     Indication: RADICULOPATHY
  2. ESTRADIOL. [Concomitant]
     Active Substance: ESTRADIOL
     Dosage: 0.5 MG, DAILY
  3. LYRICA [Suspect]
     Active Substance: PREGABALIN
     Indication: SPINAL PAIN
  4. TRAZODONE [Concomitant]
     Active Substance: TRAZODONE HYDROCHLORIDE
     Dosage: 100 MG, 1X/DAY
  5. LIPITOR [Concomitant]
     Active Substance: ATORVASTATIN CALCIUM
     Dosage: 40 MG, DAILY
  6. LYRICA [Suspect]
     Active Substance: PREGABALIN
     Indication: NERVE COMPRESSION
     Dosage: 200 MG, DAILY (1 CAP IN THE MORNING, 1 CAP IN THE AFTERNOON, AND 2 CAPS IN THE EVENING)
  7. CYMBALTA [Concomitant]
     Active Substance: DULOXETINE HYDROCHLORIDE
     Dosage: 60 MG, DAILY
  8. VALACYCLOVIR HCL [Concomitant]
     Active Substance: VALACYCLOVIR HYDROCHLORIDE
     Dosage: 1 G, DAILY
  9. LYRICA [Suspect]
     Active Substance: PREGABALIN
     Indication: BACK PAIN
  10. DEPAKOTE [Concomitant]
     Active Substance: DIVALPROEX SODIUM
     Indication: MIGRAINE
     Dosage: 500 MG, DAILY
  11. OXYCODONE [Concomitant]
     Active Substance: OXYCODONE
     Dosage: 10 MG, AS NEEDED
  12. LYRICA [Suspect]
     Active Substance: PREGABALIN
     Indication: FIBROMYALGIA
     Dosage: 50 MG, 3X/DAY (1 TAB IN THE MORNING AND AFTERNOON AND 2 TABS AT BEDTIME)
     Route: 048
  13. LYRICA [Suspect]
     Active Substance: PREGABALIN
     Indication: PAIN
  14. BACLOFEN. [Concomitant]
     Active Substance: BACLOFEN
     Dosage: 10 MG, 2X/DAY
  15. IMITREX [Concomitant]
     Active Substance: SUMATRIPTAN SUCCINATE
     Indication: MIGRAINE
     Dosage: 100 MG, AS NEEDED

REACTIONS (3)
  - Malaise [Unknown]
  - Fatigue [Not Recovered/Not Resolved]
  - Muscle rupture [Not Recovered/Not Resolved]

NARRATIVE: CASE EVENT DATE: 2018
